FAERS Safety Report 5023127-2 (Version None)
Quarter: 2006Q2

REPORT INFORMATION
  Report Type: 
  Country: None (occurrence: None)
  Receive Date: 20060525
  Receipt Date: 20060525
  Transmission Date: 20061013
  Serious: Yes (Other)
  Sender: FDA-Public Use
  Company Number: None

PATIENT
  Age: 68 Year
  Sex: Male

DRUGS (1)
  1. DERMAREST DEL LABORATORIES PHARMACEUTICAL [Suspect]
     Indication: PSORIASIS
     Dosage: SEE IMAGE

REACTIONS (2)
  - APPLICATION SITE BURN [None]
  - BURNS SECOND DEGREE [None]
